FAERS Safety Report 11947567 (Version 2)
Quarter: 2016Q1

REPORT INFORMATION
  Report Type: Report from Study
  Country: US (occurrence: US)
  Receive Date: 20160125
  Receipt Date: 20160129
  Transmission Date: 20160526
  Serious: No
  Sender: FDA-Public Use
  Company Number: US-AMGEN-USASL2015130045

PATIENT
  Age: 73 Year
  Sex: Female

DRUGS (1)
  1. REPATHA [Suspect]
     Active Substance: EVOLOCUMAB
     Indication: HYPERLIPIDAEMIA
     Dosage: 140 MG, Q2WK
     Route: 065
     Dates: start: 20151102

REACTIONS (13)
  - Visual impairment [Unknown]
  - Drug dose omission [Unknown]
  - Nervous system disorder [Unknown]
  - Dizziness [Unknown]
  - Urinary tract infection [Unknown]
  - Muscular weakness [Unknown]
  - Insomnia [Unknown]
  - Tremor [Unknown]
  - Nightmare [Unknown]
  - Memory impairment [Unknown]
  - Nervousness [Unknown]
  - Gait disturbance [Unknown]
  - Feeling abnormal [Unknown]

NARRATIVE: CASE EVENT DATE: 2015
